FAERS Safety Report 19233758 (Version 2)
Quarter: 2021Q4

REPORT INFORMATION
  Report Type: Spontaneous
  Country: US (occurrence: US)
  Receive Date: 20210507
  Receipt Date: 20211026
  Transmission Date: 20220303
  Serious: Yes (Other)
  Sender: FDA-Public Use
  Company Number: US-GILEAD-2021-0528648

PATIENT
  Sex: Female
  Weight: 68.48 kg

DRUGS (68)
  1. ATRIPLA [Suspect]
     Active Substance: EFAVIRENZ\EMTRICITABINE\TENOFOVIR DISOPROXIL FUMARATE
     Indication: HIV infection
     Dosage: UNK
     Route: 048
     Dates: start: 2009
  2. ATRIPLA [Suspect]
     Active Substance: EFAVIRENZ\EMTRICITABINE\TENOFOVIR DISOPROXIL FUMARATE
     Dosage: UNK
     Route: 048
     Dates: start: 200703, end: 20110328
  3. ATRIPLA [Suspect]
     Active Substance: EFAVIRENZ\EMTRICITABINE\TENOFOVIR DISOPROXIL FUMARATE
     Dosage: UNK
     Route: 048
     Dates: start: 20110328, end: 20110829
  4. ATRIPLA [Suspect]
     Active Substance: EFAVIRENZ\EMTRICITABINE\TENOFOVIR DISOPROXIL FUMARATE
     Dosage: UNK
     Route: 048
     Dates: start: 20111006, end: 20111101
  5. ATRIPLA [Suspect]
     Active Substance: EFAVIRENZ\EMTRICITABINE\TENOFOVIR DISOPROXIL FUMARATE
     Dosage: UNK
     Route: 048
     Dates: start: 20111101, end: 20111230
  6. ATRIPLA [Suspect]
     Active Substance: EFAVIRENZ\EMTRICITABINE\TENOFOVIR DISOPROXIL FUMARATE
     Dosage: UNK
     Route: 048
     Dates: start: 20111230, end: 20160114
  7. ATRIPLA [Suspect]
     Active Substance: EFAVIRENZ\EMTRICITABINE\TENOFOVIR DISOPROXIL FUMARATE
     Dosage: UNK
     Route: 048
     Dates: start: 201610, end: 201807
  8. TRUVADA [Suspect]
     Active Substance: EMTRICITABINE\TENOFOVIR DISOPROXIL FUMARATE
     Indication: HIV infection
     Dosage: UNK
     Route: 048
     Dates: start: 20160114, end: 20160317
  9. TRUVADA [Suspect]
     Active Substance: EMTRICITABINE\TENOFOVIR DISOPROXIL FUMARATE
     Dosage: UNK
     Route: 048
     Dates: start: 20160317, end: 20160618
  10. TRUVADA [Suspect]
     Active Substance: EMTRICITABINE\TENOFOVIR DISOPROXIL FUMARATE
     Dosage: UNK
     Route: 048
     Dates: start: 20160618, end: 201610
  11. ODEFSEY [Concomitant]
     Active Substance: EMTRICITABINE\RILPIVIRINE HYDROCHLORIDE\TENOFOVIR ALAFENAMIDE FUMARATE
  12. EDURANT [Concomitant]
     Active Substance: RILPIVIRINE HYDROCHLORIDE
  13. LISINOPRIL [Concomitant]
     Active Substance: LISINOPRIL
  14. ABILIFY [Concomitant]
     Active Substance: ARIPIPRAZOLE
  15. NATURE CARE [Concomitant]
  16. ACETAMINOPHEN [Concomitant]
     Active Substance: ACETAMINOPHEN
  17. ACYCLOVIR [Concomitant]
     Active Substance: ACYCLOVIR
  18. ALBUTEROL SULFATE [Concomitant]
     Active Substance: ALBUTEROL SULFATE
  19. ALLEGRA [Concomitant]
     Active Substance: FEXOFENADINE HYDROCHLORIDE
  20. ALTACE [Concomitant]
     Active Substance: RAMIPRIL
  21. AMLODIPINE [Concomitant]
     Active Substance: AMLODIPINE BESYLATE
  22. AMOXICILLIN [Concomitant]
     Active Substance: AMOXICILLIN
  23. AZITHROMYCIN ANHYDROUS [Concomitant]
     Active Substance: AZITHROMYCIN ANHYDROUS
  24. BENZONATATE [Concomitant]
     Active Substance: BENZONATATE
  25. BISACODYL [Concomitant]
     Active Substance: BISACODYL
  26. CARISOPRODOL [Concomitant]
     Active Substance: CARISOPRODOL
  27. CARVEDILOL [Concomitant]
     Active Substance: CARVEDILOL
  28. CEPHALEXIN [Concomitant]
     Active Substance: CEPHALEXIN
  29. CHANTIX [Concomitant]
     Active Substance: VARENICLINE TARTRATE
  30. AMMONIUM CHLORIDE\DEXTROMETHORPHAN\SODIUM CITRATE [Concomitant]
     Active Substance: AMMONIUM CHLORIDE\DEXTROMETHORPHAN\SODIUM CITRATE
  31. CIPROFLOXACIN [Concomitant]
     Active Substance: CIPROFLOXACIN
  32. CLINDAMYCIN [Concomitant]
     Active Substance: CLINDAMYCIN
  33. COMBIVENT [Concomitant]
     Active Substance: ALBUTEROL SULFATE\IPRATROPIUM BROMIDE
  34. DETROL [Concomitant]
     Active Substance: TOLTERODINE TARTRATE
  35. DICYCLOMINE CO [Concomitant]
  36. FAMOTIDINE [Concomitant]
     Active Substance: FAMOTIDINE
  37. FLUCONAZOLE [Concomitant]
     Active Substance: FLUCONAZOLE
  38. FLUTICASONE [Concomitant]
     Active Substance: FLUTICASONE
  39. GABAPENTIN [Concomitant]
     Active Substance: GABAPENTIN
  40. GUAIFENESIN [Concomitant]
     Active Substance: GUAIFENESIN
  41. GUAIFENESIN [Concomitant]
     Active Substance: GUAIFENESIN
  42. HYDROCODONE [Concomitant]
     Active Substance: HYDROCODONE
  43. IMIPRAMINE [Concomitant]
     Active Substance: IMIPRAMINE
  44. LEVAQUIN [Concomitant]
     Active Substance: LEVOFLOXACIN
  45. LIDODERM [Concomitant]
     Active Substance: LIDOCAINE
  46. LORATADINE [Concomitant]
     Active Substance: LORATADINE
  47. LORAZEPAM [Concomitant]
     Active Substance: LORAZEPAM
  48. LYRICA [Concomitant]
     Active Substance: PREGABALIN
  49. MEGACE [Concomitant]
     Active Substance: MEGESTROL ACETATE
  50. METOPROLOL [Concomitant]
     Active Substance: METOPROLOL
  51. MIRTAZAPINE [Concomitant]
     Active Substance: MIRTAZAPINE
  52. NAPROXEN [Concomitant]
     Active Substance: NAPROXEN
  53. NORCO [Concomitant]
     Active Substance: ACETAMINOPHEN\HYDROCODONE BITARTRATE
  54. NORVASC [Concomitant]
     Active Substance: AMLODIPINE BESYLATE
  55. OMNICEF [CEFOTAXIME SODIUM] [Concomitant]
  56. OXYCODONE [Concomitant]
     Active Substance: OXYCODONE
  57. PRAMIPEXOLE [Concomitant]
     Active Substance: PRAMIPEXOLE
  58. PRAVASTATIN [Concomitant]
     Active Substance: PRAVASTATIN
  59. PREMARIN [Concomitant]
     Active Substance: ESTROGENS, CONJUGATED
  60. PROAIR BRONQUIAL [Concomitant]
  61. PROMETHAZINE [Concomitant]
     Active Substance: PROMETHAZINE HYDROCHLORIDE
  62. OMEPRAZOLE [Concomitant]
     Active Substance: OMEPRAZOLE
  63. QUETIAPINE [Concomitant]
     Active Substance: QUETIAPINE
  64. SULFAMETHOXAZOLE [Concomitant]
     Active Substance: SULFAMETHOXAZOLE
  65. TOVIAZ [Concomitant]
     Active Substance: FESOTERODINE FUMARATE
  66. TRAMADOL [Concomitant]
     Active Substance: TRAMADOL
  67. TRAZODONE [Concomitant]
     Active Substance: TRAZODONE HYDROCHLORIDE
  68. WARFARIN [Concomitant]
     Active Substance: WARFARIN

REACTIONS (7)
  - Chronic kidney disease [Not Recovered/Not Resolved]
  - Chronic kidney disease [Not Recovered/Not Resolved]
  - Pain [Not Recovered/Not Resolved]
  - Emotional distress [Not Recovered/Not Resolved]
  - Anxiety [Not Recovered/Not Resolved]
  - Anhedonia [Not Recovered/Not Resolved]
  - Dysstasia [Unknown]

NARRATIVE: CASE EVENT DATE: 20160101
